FAERS Safety Report 17889555 (Version 1)
Quarter: 2020Q2

REPORT INFORMATION
  Report Type: Spontaneous
  Country: CN (occurrence: CN)
  Receive Date: 20200612
  Receipt Date: 20200612
  Transmission Date: 20200714
  Serious: Yes (Other)
  Sender: FDA-Public Use
  Company Number: CN-PFIZER INC-2020210697

PATIENT
  Age: 55 Year
  Sex: Female
  Weight: 65 kg

DRUGS (13)
  1. METHYLPREDNISOLONE SODIUM SUCCINATE. [Suspect]
     Active Substance: METHYLPREDNISOLONE SODIUM SUCCINATE
     Dosage: 20 MG, 1X/DAY
     Route: 042
     Dates: start: 202001, end: 202001
  2. OSELTAMIVIR [Concomitant]
     Active Substance: OSELTAMIVIR
     Indication: ANTIVIRAL TREATMENT
     Dosage: 75 MG, 2X/DAY
     Route: 048
     Dates: start: 20200119, end: 202001
  3. METHYLPREDNISOLONE SODIUM SUCCINATE. [Suspect]
     Active Substance: METHYLPREDNISOLONE SODIUM SUCCINATE
     Indication: IMMUNOMODULATORY THERAPY
     Dosage: 40 MG, 1X/DAY (ONCE IN THE AFTERNOON)
     Route: 042
     Dates: start: 20200124
  4. METHYLPREDNISOLONE SODIUM SUCCINATE. [Suspect]
     Active Substance: METHYLPREDNISOLONE SODIUM SUCCINATE
     Dosage: 10 MG, 1X/DAY
     Route: 042
     Dates: start: 202001, end: 202001
  5. METHYLPREDNISOLONE SODIUM SUCCINATE. [Suspect]
     Active Substance: METHYLPREDNISOLONE SODIUM SUCCINATE
     Dosage: 40 MG, 1X/DAY (HOSPITAL DAY 8) (AGAIN PRESCRIBED ONCE PER DAY)
     Route: 042
     Dates: start: 20200126
  6. CEFOTAXIME [Concomitant]
     Active Substance: CEFOTAXIME SODIUM
     Indication: PNEUMONIA
     Dosage: UNK
     Dates: start: 202001
  7. OXYGEN. [Concomitant]
     Active Substance: OXYGEN
     Dosage: UNK (HIGH-FLOW OXYGEN THERAPY)
     Dates: start: 202001
  8. NOREPINEPHRINE. [Concomitant]
     Active Substance: NOREPINEPHRINE
     Indication: BLOOD PRESSURE MANAGEMENT
     Dosage: UNK (0.02-0.08 UG/KG/MIN)
     Dates: start: 202001, end: 202001
  9. HUMAN IMMUNOGLOBULIN [Concomitant]
     Indication: IMMUNOMODULATORY THERAPY
     Dosage: 15 G, 1X/DAY
     Dates: start: 202001, end: 202001
  10. METHYLPREDNISOLONE SODIUM SUCCINATE. [Suspect]
     Active Substance: METHYLPREDNISOLONE SODIUM SUCCINATE
     Dosage: 10 MG, 1X/DAY ((HOSPITAL DAY 15)
     Route: 042
     Dates: start: 202001, end: 20200202
  11. METHYLPREDNISOLONE SODIUM SUCCINATE. [Suspect]
     Active Substance: METHYLPREDNISOLONE SODIUM SUCCINATE
     Dosage: 40 MG, 1X/DAY (ONCE AGAIN IN THE AFTERNOON)
     Route: 042
     Dates: start: 20200125
  12. METHYLPREDNISOLONE SODIUM SUCCINATE. [Suspect]
     Active Substance: METHYLPREDNISOLONE SODIUM SUCCINATE
     Indication: COVID-19
     Dosage: 40 MG, 2X/DAY (ONCE EVERY 12 HOURS)
     Route: 042
     Dates: start: 202001
  13. PIPERACILLIN/TAZOBACTAM [Concomitant]
     Active Substance: PIPERACILLIN SODIUM\TAZOBACTAM SODIUM
     Indication: ANTIBIOTIC THERAPY
     Dosage: 4.5 G, 3X/DAY (1TIME/8H)
     Dates: start: 20200119, end: 202001

REACTIONS (5)
  - Product use in unapproved indication [Unknown]
  - T-lymphocyte count decreased [Unknown]
  - Blood glucose increased [Recovering/Resolving]
  - Off label use [Unknown]
  - Drug effective for unapproved indication [Recovered/Resolved]

NARRATIVE: CASE EVENT DATE: 202001
